FAERS Safety Report 8483898-X (Version None)
Quarter: 2012Q2

REPORT INFORMATION
  Report Type: 
  Country: None (occurrence: None)
  Receive Date: 20120402
  Receipt Date: 20110428
  Transmission Date: 20120825
  Serious: Yes (Hospitalization)
  Sender: FDA-Public Use
  Company Number: A-NJ2011-48199

PATIENT
  Age: 24 Year
  Sex: Female

DRUGS (8)
  1. DIGOXIN [Concomitant]
  2. SILDENAFIL (SILDENAFIL CITRATE) [Concomitant]
  3. EPOPROSTENOL SODIUM [Suspect]
     Indication: PULMONARY ARTERIAL HYPERTENSION
     Dosage: 78 NG/KG, PER MIN, IV DRIP 74 NG/KG, PER MIN, IV DRIP 72 NG/KG, PER MIN, IV DRIP
     Route: 041
     Dates: start: 20110428
  4. EPOPROSTENOL SODIUM [Suspect]
     Indication: PULMONARY ARTERIAL HYPERTENSION
     Dosage: 78 NG/KG, PER MIN, IV DRIP 74 NG/KG, PER MIN, IV DRIP 72 NG/KG, PER MIN, IV DRIP
     Route: 041
     Dates: start: 20110428, end: 20110428
  5. EPOPROSTENOL SODIUM [Suspect]
     Indication: PULMONARY ARTERIAL HYPERTENSION
     Dosage: 78 NG/KG, PER MIN, IV DRIP 74 NG/KG, PER MIN, IV DRIP 72 NG/KG, PER MIN, IV DRIP
     Route: 041
     Dates: start: 20110427, end: 20110428
  6. COUMADIN [Concomitant]
  7. OXYGEN (OXYGEN) [Concomitant]
  8. LASIX [Concomitant]

REACTIONS (2)
  - ANXIETY [None]
  - PAIN [None]
